FAERS Safety Report 9912635 (Version 1)
Quarter: 2014Q1

REPORT INFORMATION
  Report Type: Spontaneous
  Country: US (occurrence: None)
  Receive Date: 20140212
  Receipt Date: 20140212
  Transmission Date: 20141002
  Serious: Yes (Other)
  Sender: FDA-Public Use
  Company Number: 00166475A

PATIENT
  Age: 18 Year
  Sex: Female

DRUGS (5)
  1. PROACTIV + SKIN SMOOTHING EXFOLIATOR [Suspect]
     Indication: ACNE
     Route: 061
     Dates: start: 20131028
  2. PROACTIV PLUS PORE TARGETING TREATMENT [Suspect]
     Indication: ACNE
     Route: 061
     Dates: start: 20131028
  3. PROACTIV + COMPLEXION PERFECTING HYDRATOR [Suspect]
     Indication: ACNE
     Route: 061
     Dates: start: 20131028
  4. PROACTIV + EYE BRIGHTENING SERUM [Suspect]
     Indication: ACNE
     Route: 061
     Dates: start: 20131028
  5. PROACTIV+MARK FADING PADS [Suspect]
     Indication: ACNE
     Route: 061
     Dates: start: 20131028

REACTIONS (3)
  - Erythema [None]
  - Swelling [None]
  - Rash [None]
